FAERS Safety Report 5695321-9 (Version None)
Quarter: 2008Q2

REPORT INFORMATION
  Report Type: 
  Country: None (occurrence: None)
  Receive Date: 20080404
  Receipt Date: 20080328
  Transmission Date: 20081010
  Serious: Yes (Other)
  Sender: FDA-Public Use
  Company Number: GB-PFIZER INC-2008028555

PATIENT
  Age: 55 Year
  Sex: Male

DRUGS (6)
  1. PREDNISOLONE [Suspect]
     Indication: DERMATITIS ATOPIC
     Route: 048
     Dates: start: 20040101, end: 20060301
  2. PYRIDOXINE [Concomitant]
     Indication: DERMATITIS ATOPIC
  3. AZATHIOPRINE [Concomitant]
     Indication: DERMATITIS ATOPIC
  4. CYCLOSPORINE [Concomitant]
     Dates: start: 20050101, end: 20050101
  5. CYANOCOBALAMIN [Concomitant]
     Indication: DERMATITIS ATOPIC
  6. THIAMINE [Concomitant]
     Indication: DERMATITIS ATOPIC

REACTIONS (4)
  - ARTHRALGIA [None]
  - BONE MARROW OEDEMA SYNDROME [None]
  - GAIT DISTURBANCE [None]
  - OSTEOPENIA [None]
